FAERS Safety Report 8264322-9 (Version None)
Quarter: 2012Q2

REPORT INFORMATION
  Report Type: 
  Country: None (occurrence: None)
  Receive Date: 20120406
  Receipt Date: 20120330
  Transmission Date: 20120825
  Serious: No
  Sender: FDA-Public Use
  Company Number: US-PFIZER INC-2012067747

PATIENT
  Sex: Male

DRUGS (4)
  1. LYRICA [Suspect]
     Indication: FACIAL PAIN
     Dosage: 200 MG, 3X/DAY
     Route: 048
     Dates: start: 20110907, end: 20120201
  2. AMITRIPTYLINE [Concomitant]
     Dosage: 25 MG, 1X/DAY
  3. KEPPRA [Concomitant]
     Dosage: 1000 MG, 4X/DAY
  4. OXYCODONE [Concomitant]
     Dosage: 10 MG, EVERY 6 HOURS A DAY

REACTIONS (7)
  - ANXIETY [None]
  - NIGHTMARE [None]
  - DRUG INEFFECTIVE [None]
  - NERVOUSNESS [None]
  - WITHDRAWAL SYNDROME [None]
  - CRYING [None]
  - ABNORMAL DREAMS [None]
